FAERS Safety Report 9388885 (Version 1)
Quarter: 2013Q3

REPORT INFORMATION
  Report Type: Spontaneous
  Country: GB (occurrence: GB)
  Receive Date: 20130708
  Receipt Date: 20130708
  Transmission Date: 20140515
  Serious: Yes (Other)
  Sender: FDA-Public Use
  Company Number: GB-BRISTOL-MYERS SQUIBB COMPANY-19062942

PATIENT
  Age: 39 Year
  Sex: Male
  Weight: 174 kg

DRUGS (1)
  1. EXENATIDE [Suspect]

REACTIONS (1)
  - Erectile dysfunction [Recovered/Resolved]
